FAERS Safety Report 12961347 (Version 1)
Quarter: 2016Q4

REPORT INFORMATION
  Report Type: Spontaneous
  Country: FR (occurrence: FR)
  Receive Date: 20161121
  Receipt Date: 20161121
  Transmission Date: 20170207
  Serious: Yes (Hospitalization, Other)
  Sender: FDA-Public Use
  Company Number: FR-PFIZER INC-2016532262

PATIENT
  Age: 68 Year
  Sex: Female
  Weight: 53 kg

DRUGS (12)
  1. METHYLPREDNISOLONE MYLAN /00049602/ [Concomitant]
     Active Substance: METHYLPREDNISOLONE SODIUM SUCCINATE
     Dosage: 80 MG, UNK
     Route: 042
     Dates: start: 20160530
  2. ONDANSETRON ACCORD [Concomitant]
     Active Substance: ONDANSETRON
     Dosage: 8 MG, UNK
     Route: 042
     Dates: start: 20160530
  3. DOXORUBICIN TEVA [Suspect]
     Active Substance: DOXORUBICIN
     Indication: DIFFUSE LARGE B-CELL LYMPHOMA STAGE IV
     Dosage: 82 MG, CYCLIC
     Route: 042
     Dates: start: 20160530
  4. ZELITREX [Concomitant]
     Active Substance: VALACYCLOVIR HYDROCHLORIDE
     Dosage: 500 MG, 2X/DAY
     Route: 048
  5. MABTHERA [Suspect]
     Active Substance: RITUXIMAB
     Indication: DIFFUSE LARGE B-CELL LYMPHOMA STAGE IV
     Dosage: 620 MG, CYCLIC
     Route: 042
     Dates: start: 20160530
  6. ENDOXAN /00021101/ [Suspect]
     Active Substance: CYCLOPHOSPHAMIDE
     Indication: DIFFUSE LARGE B-CELL LYMPHOMA STAGE IV
     Dosage: 1230 MG, CYCLIC
     Route: 042
     Dates: start: 20160530
  7. DIFFU-K [Concomitant]
     Active Substance: POTASSIUM CHLORIDE
     Dosage: 600 MG, DAILY
     Route: 048
  8. PARACETAMOL [Concomitant]
     Active Substance: ACETAMINOPHEN
     Dosage: 500 MG, UNK
     Route: 042
     Dates: start: 20160530
  9. POLARAMINE [Concomitant]
     Active Substance: DEXCHLORPHENIRAMINE MALEATE
     Dosage: 5 MG, DAILY
     Route: 042
     Dates: start: 20160530
  10. METHOTREXATE BIODIM [Suspect]
     Active Substance: METHOTREXATE
     Indication: DIFFUSE LARGE B-CELL LYMPHOMA STAGE IV
     Dosage: 15 MG, CYCLIC
     Route: 024
     Dates: start: 20160530
  11. VINCRISTINE SULFATE. [Suspect]
     Active Substance: VINCRISTINE SULFATE
     Indication: DIFFUSE LARGE B-CELL LYMPHOMA STAGE IV
     Dosage: 2 MG, CYCLIC
     Route: 042
     Dates: start: 20160530
  12. FUROSEMIDE. [Concomitant]
     Active Substance: FUROSEMIDE
     Dosage: 40 MG, 2X/DAY
     Route: 048

REACTIONS (2)
  - Bone marrow failure [Recovered/Resolved]
  - Pneumonia [Unknown]

NARRATIVE: CASE EVENT DATE: 20160530
